FAERS Safety Report 4355146-3 (Version None)
Quarter: 2004Q2

REPORT INFORMATION
  Report Type: 
  Country: None (occurrence: None)
  Receive Date: 20040510
  Receipt Date: 20040423
  Transmission Date: 20050107
  Serious: Yes (Other)
  Sender: FDA-Public Use
  Company Number: 200414498GDDC

PATIENT
  Age: 47 Year
  Sex: Male

DRUGS (2)
  1. KETEK [Suspect]
     Indication: BRONCHITIS
     Route: 048
     Dates: start: 20040421, end: 20040425
  2. ROBAXACET [Concomitant]
     Dates: start: 20040421, end: 20040421

REACTIONS (7)
  - CONFUSIONAL STATE [None]
  - DYSPNOEA [None]
  - INSOMNIA [None]
  - IRRITABILITY [None]
  - NERVOUSNESS [None]
  - PYREXIA [None]
  - SUFFOCATION FEELING [None]
